FAERS Safety Report 4379592-7 (Version None)
Quarter: 2004Q2

REPORT INFORMATION
  Report Type: 
  Country: None (occurrence: None)
  Receive Date: 20040427
  Receipt Date: 20040310
  Transmission Date: 20050107
  Serious: Yes (Other)
  Sender: FDA-Public Use
  Company Number: 361396

PATIENT
  Sex: Male

DRUGS (2)
  1. VALCYTE [Suspect]
     Indication: CYTOMEGALOVIRUS INFECTION
     Dosage: ORAL
     Route: 048
  2. VALCYTE [Suspect]
     Indication: LEUKAEMIA
     Dosage: ORAL
     Route: 048

REACTIONS (1)
  - BODY TEMPERATURE INCREASED [None]
